FAERS Safety Report 5699103-3 (Version None)
Quarter: 2008Q2

REPORT INFORMATION
  Report Type: 
  Country: None (occurrence: None)
  Receive Date: 20080407
  Receipt Date: 20080407
  Transmission Date: 20081010
  Serious: Yes (Life-Threatening, Other)
  Sender: FDA-Public Use
  Company Number: None

PATIENT
  Age: 56 Year
  Sex: Female
  Weight: 72.5755 kg

DRUGS (11)
  1. SINGULAIR [Suspect]
     Indication: ALLERGY TO ANIMAL
     Dosage: 10MG DAILY PO
     Route: 048
     Dates: start: 19980102, end: 20080325
  2. SINGULAIR [Suspect]
     Indication: HOUSE DUST ALLERGY
     Dosage: 10MG DAILY PO
     Route: 048
     Dates: start: 19980102, end: 20080325
  3. SINGULAIR [Suspect]
     Indication: MYCOTIC ALLERGY
     Dosage: 10MG DAILY PO
     Route: 048
     Dates: start: 19980102, end: 20080325
  4. SINGULAIR [Suspect]
     Indication: SEASONAL ALLERGY
     Dosage: 10MG DAILY PO
     Route: 048
     Dates: start: 19980102, end: 20080325
  5. REMROM [Concomitant]
  6. VALIUM [Concomitant]
  7. DARVOCET [Concomitant]
  8. ALEVE [Concomitant]
  9. LEXAPRO [Concomitant]
  10. ALLEGRA [Concomitant]
  11. CYMBALTA [Concomitant]

REACTIONS (6)
  - DEPRESSION [None]
  - FEELING OF DESPAIR [None]
  - MOOD ALTERED [None]
  - PARTNER STRESS [None]
  - SOCIAL AVOIDANT BEHAVIOUR [None]
  - SUICIDAL IDEATION [None]
